FAERS Safety Report 9408926 (Version 1)
Quarter: 2013Q3

REPORT INFORMATION
  Report Type: Spontaneous
  Country: IT (occurrence: IT)
  Receive Date: 20130719
  Receipt Date: 20130719
  Transmission Date: 20140515
  Serious: Yes (Other)
  Sender: FDA-Public Use
  Company Number: IT-BRISTOL-MYERS SQUIBB COMPANY-19091594

PATIENT
  Age: 79 Year
  Sex: Male

DRUGS (3)
  1. COUMADIN TABS 5 MG [Suspect]
     Indication: VENOUS THROMBOSIS
     Route: 048
     Dates: start: 20121101
  2. CIPROXIN [Concomitant]
     Dosage: 1DF:400MG/200ML INFUSION SOLUTION
  3. CLEXANE [Concomitant]
     Dosage: 1DF:6000 IU AXA/0.6ML INJECTION SOLUTION

REACTIONS (1)
  - Renal failure acute [Recovering/Resolving]
